FAERS Safety Report 17242633 (Version 1)
Quarter: 2020Q1

REPORT INFORMATION
  Report Type: Spontaneous
  Country: US (occurrence: US)
  Receive Date: 20200106
  Receipt Date: 20200106
  Transmission Date: 20200409
  Serious: Yes (Other)
  Sender: FDA-Public Use
  Company Number: None

PATIENT
  Age: 79 Year
  Sex: Female
  Weight: 52.56 kg

DRUGS (21)
  1. ASHWAGANDA [Concomitant]
  2. MAGNESIUM OXIDE. [Concomitant]
     Active Substance: MAGNESIUM OXIDE
  3. METROGEL [Concomitant]
     Active Substance: METRONIDAZOLE
  4. PROBIOTIC [Concomitant]
     Active Substance: PROBIOTICS NOS
  5. VITAMIN D3 [Concomitant]
     Active Substance: CHOLECALCIFEROL
  6. GLUCOSAMINE [Concomitant]
     Active Substance: GLUCOSAMINE
  7. NINLARO [Concomitant]
     Active Substance: IXAZOMIB CITRATE
  8. RANITIDINE. [Concomitant]
     Active Substance: RANITIDINE
  9. VALERIAN [Concomitant]
     Active Substance: VALERIAN
  10. CYCLOPHOSPHAMIDE. [Suspect]
     Active Substance: CYCLOPHOSPHAMIDE
     Indication: PLASMA CELL MYELOMA
     Dosage: ?          OTHER FREQUENCY:450MG EVERY WEEK;?
     Route: 048
     Dates: start: 20191025
  11. BIOTIN [Concomitant]
     Active Substance: BIOTIN
  12. ASPIRIN. [Concomitant]
     Active Substance: ASPIRIN
  13. VITAMIN B COMPLEX [Concomitant]
     Active Substance: CYANOCOBALAMIN\DEXPANTHENOL\NIACINAMIDE\PYRIDOXINE HYDROCHLORIDE\RIBOFLAVIN 5^-PHOSPHATE SODIUM\THIAMINE HYDROCHLORIDE\VITAMIN B COMPLEX
  14. ALPHA LIPOIC ACID [Concomitant]
     Active Substance: .ALPHA.-LIPOIC ACID
  15. CALCIUM CITRATE [Concomitant]
     Active Substance: CALCIUM CITRATE
  16. DHA COMPLETE [Concomitant]
  17. MELATONIN [Concomitant]
     Active Substance: MELATONIN
  18. MIRALAX [Concomitant]
     Active Substance: POLYETHYLENE GLYCOL 3350
  19. DEXAMETHASONE. [Concomitant]
     Active Substance: DEXAMETHASONE
  20. PANTOPRAZOLE [Concomitant]
     Active Substance: PANTOPRAZOLE
  21. VALTREX [Concomitant]
     Active Substance: VALACYCLOVIR HYDROCHLORIDE

REACTIONS (1)
  - Rash [None]

NARRATIVE: CASE EVENT DATE: 20200106
